FAERS Safety Report 19681839 (Version 4)
Quarter: 2021Q3

REPORT INFORMATION
  Report Type: Report from Study
  Country: US (occurrence: US)
  Receive Date: 20210810
  Receipt Date: 20210930
  Transmission Date: 20211014
  Serious: No
  Sender: FDA-Public Use
  Company Number: US-B.I. PHARMACEUTICALS,INC./RIDGEFIELD-2021-BI-114788

PATIENT
  Age: 84 Year
  Sex: Female

DRUGS (2)
  1. OFEV [Suspect]
     Active Substance: NINTEDANIB
     Dosage: OFEV DOSE 200MG DAILY
     Route: 048
  2. OFEV [Suspect]
     Active Substance: NINTEDANIB
     Indication: IDIOPATHIC PULMONARY FIBROSIS
     Dosage: OFEV 100MG ORALLY TWICE DAILY
     Route: 048
     Dates: start: 20210706

REACTIONS (6)
  - Diarrhoea [Recovered/Resolved]
  - Gastrointestinal disorder [Unknown]
  - Decreased appetite [Unknown]
  - Flatulence [Unknown]
  - Bowel movement irregularity [Unknown]
  - Diarrhoea [Not Recovered/Not Resolved]

NARRATIVE: CASE EVENT DATE: 20210726
